FAERS Safety Report 5229878-9 (Version None)
Quarter: 2007Q1

REPORT INFORMATION
  Report Type: 
  Country: None (occurrence: None)
  Receive Date: 20070206
  Receipt Date: 20061117
  Transmission Date: 20070707
  Serious: No
  Sender: FDA-Public Use
  Company Number: US-GLAXOSMITHKLINE-A0627943A

PATIENT
  Sex: Female

DRUGS (10)
  1. PAXIL [Suspect]
     Indication: DEPRESSION
     Dosage: 10MG PER DAY
  2. PAROXETINE HCL [Suspect]
     Dosage: 20MG PER DAY
     Dates: start: 20061002
  3. CRESTOR [Concomitant]
  4. ENALAPRIL MALEATE [Concomitant]
  5. FUROSEMIDE [Concomitant]
  6. AMARYL [Concomitant]
  7. ACTOS [Concomitant]
  8. NITROQUICK [Concomitant]
  9. SKELAXIN [Concomitant]
  10. VICODIN [Concomitant]

REACTIONS (1)
  - DRUG INEFFECTIVE [None]
